FAERS Safety Report 8391019-7 (Version None)
Quarter: 2012Q2

REPORT INFORMATION
  Report Type: 
  Country: None (occurrence: None)
  Receive Date: 20120529
  Receipt Date: 20120516
  Transmission Date: 20120825
  Serious: Yes (Hospitalization)
  Sender: FDA-Public Use
  Company Number: FR-JNJFOC-20120515943

PATIENT
  Sex: Female

DRUGS (2)
  1. ACTIFED [Suspect]
     Indication: PRODUCT USED FOR UNKNOWN INDICATION
     Route: 048
     Dates: start: 20120301, end: 20120320
  2. ACTIFED [Suspect]
     Indication: PRODUCT USED FOR UNKNOWN INDICATION
     Route: 048
     Dates: start: 20120301, end: 20120320

REACTIONS (4)
  - PNEUMOTHORAX [None]
  - URTICARIA [None]
  - ANAPHYLACTIC SHOCK [None]
  - DYSPNOEA [None]
